FAERS Safety Report 4371563-X (Version None)
Quarter: 2004Q2

REPORT INFORMATION
  Report Type: 
  Country: None (occurrence: None)
  Receive Date: 20040607
  Receipt Date: 20040526
  Transmission Date: 20050107
  Serious: Yes (Other)
  Sender: FDA-Public Use
  Company Number: US-JNJFOC-20040506348

PATIENT
  Age: 13 Year
  Sex: Female

DRUGS (11)
  1. REMICADE [Suspect]
     Indication: TAKAYASU'S ARTERITIS
     Route: 042
  2. METHOTREXATE [Concomitant]
  3. FOLIC ACID [Concomitant]
  4. BACTRIM [Concomitant]
  5. BACTRIM [Concomitant]
     Dosage: 1.5 TABLETS, 2 IN 1 DAY, THREE TIMES WEEKLY
  6. PREDNISONE [Concomitant]
  7. ATENOLOL [Concomitant]
  8. CALCIUM + D [Concomitant]
  9. PEPCID [Concomitant]
  10. LASIX [Concomitant]
     Dosage: SUNDAY, MONDAY, TUESDAY, THURSDAY, FRIDAY
  11. ASPIRIN [Concomitant]

REACTIONS (4)
  - ALANINE AMINOTRANSFERASE INCREASED [None]
  - ASPARTATE AMINOTRANSFERASE INCREASED [None]
  - BLOOD LACTATE DEHYDROGENASE INCREASED [None]
  - EOSINOPHILIA [None]
